FAERS Safety Report 18973949 (Version 1)
Quarter: 2021Q1

REPORT INFORMATION
  Report Type: Spontaneous
  Country: GB (occurrence: GB)
  Receive Date: 20210305
  Receipt Date: 20210305
  Transmission Date: 20210420
  Serious: Yes (Other)
  Sender: FDA-Public Use
  Company Number: GB-ASTRAZENECA-2021A106340

PATIENT
  Age: 75 Year
  Sex: Male

DRUGS (2)
  1. CLONAZEPAM. [Suspect]
     Active Substance: CLONAZEPAM
     Indication: ANXIETY
     Dosage: 1.0MG UNKNOWN
     Route: 048
     Dates: start: 20170210
  2. QUETIAPINE FUMARATE. [Suspect]
     Active Substance: QUETIAPINE FUMARATE
     Indication: ILL-DEFINED DISORDER
     Dosage: 200.0MG UNKNOWN
     Route: 048
     Dates: start: 20170210

REACTIONS (1)
  - Adverse drug reaction [Not Recovered/Not Resolved]
